FAERS Safety Report 7691410-8 (Version None)
Quarter: 2011Q3

REPORT INFORMATION
  Report Type: 
  Country: None (occurrence: None)
  Receive Date: 20110818
  Receipt Date: 20110810
  Transmission Date: 20111222
  Serious: Yes (Other)
  Sender: FDA-Public Use
  Company Number: PHHY2010US53937

PATIENT
  Sex: Female
  Weight: 68 kg

DRUGS (12)
  1. GLEEVEC [Suspect]
     Indication: GASTROINTESTINAL STROMAL TUMOUR
     Dosage: 400 MG, DAILY
     Route: 048
     Dates: start: 20100105
  2. IRON SUPPLEMENTS [Concomitant]
     Indication: IRON DEFICIENCY ANAEMIA
     Dosage: 1 DF, DAILY
     Route: 048
     Dates: start: 20100401, end: 20110501
  3. SENNA [Concomitant]
     Route: 048
  4. METOPROLOL TARTRATE [Concomitant]
     Dosage: 50 MG, DAILY
     Route: 048
  5. XANAX [Concomitant]
     Dosage: 0.25 MG, PRN
     Route: 048
  6. CRESTOR [Concomitant]
     Dosage: 10 MG, DAILY
     Route: 048
     Dates: start: 20101201
  7. CALCIUM CARBONATE [Concomitant]
  8. METOPROLOL TARTRATE [Concomitant]
     Dosage: 25 MG, UNK
     Route: 048
  9. VICODIN [Concomitant]
     Dosage: 500 MG, UNK
     Route: 048
  10. FERROPLEX [Concomitant]
     Dosage: 90 MG, UNK
     Route: 048
  11. LISINOPRIL [Concomitant]
  12. ASPIRIN [Concomitant]
     Dosage: 81 MG, UNK

REACTIONS (10)
  - FREQUENT BOWEL MOVEMENTS [None]
  - MUSCLE SPASMS [None]
  - DEFAECATION URGENCY [None]
  - HAEMATOCHEZIA [None]
  - PLATELET COUNT DECREASED [None]
  - CONSTIPATION [None]
  - ABDOMINAL PAIN [None]
  - BLOOD CREATININE INCREASED [None]
  - SKIN DISCOLOURATION [None]
  - NAUSEA [None]
